FAERS Safety Report 9017544 (Version 1)
Quarter: 2013Q1

REPORT INFORMATION
  Report Type: Spontaneous
  Country: FR (occurrence: FR)
  Receive Date: 20130117
  Receipt Date: 20130117
  Transmission Date: 20140127
  Serious: Yes (Disabling, Other)
  Sender: FDA-Public Use
  Company Number: FR-ABBOTT-13P-056-1034258-00

PATIENT
  Age: 61 Year
  Sex: Male

DRUGS (3)
  1. ZECLAR [Suspect]
     Indication: ATYPICAL MYCOBACTERIAL INFECTION
     Route: 048
     Dates: start: 20120602, end: 20120906
  2. ANSATIPINE [Suspect]
     Indication: ATYPICAL MYCOBACTERIAL INFECTION
     Route: 048
     Dates: start: 20120602, end: 20120906
  3. DEXAMBUTOL [Concomitant]
     Indication: ATYPICAL MYCOBACTERIAL INFECTION
     Route: 048
     Dates: start: 20120602

REACTIONS (2)
  - Uveitis [Recovered/Resolved]
  - Atypical mycobacterium test positive [Unknown]
